FAERS Safety Report 16255079 (Version 2)
Quarter: 2019Q3

REPORT INFORMATION
  Report Type: Report from Study
  Country: US (occurrence: US)
  Receive Date: 20190430
  Receipt Date: 20190806
  Transmission Date: 20191004
  Serious: Yes (Other)
  Sender: FDA-Public Use
  Company Number: US-GILEAD-2019-0404564

PATIENT
  Age: 55 Year
  Sex: Female
  Weight: 47.35 kg

DRUGS (26)
  1. METOLAZONE. [Concomitant]
     Active Substance: METOLAZONE
  2. RANITIDINE. [Concomitant]
     Active Substance: RANITIDINE
  3. TADALAFIL. [Concomitant]
     Active Substance: TADALAFIL
  4. HYDROXINE [Concomitant]
     Active Substance: HYDROXYZINE HYDROCHLORIDE
  5. PROCHLORPERAZINE. [Concomitant]
     Active Substance: PROCHLORPERAZINE
  6. PROMETHAZINE [Concomitant]
     Active Substance: PROMETHAZINE HYDROCHLORIDE
  7. TRAZODONE [Concomitant]
     Active Substance: TRAZODONE HYDROCHLORIDE
  8. GABAPENTIN. [Concomitant]
     Active Substance: GABAPENTIN
  9. MORPHINE [Concomitant]
     Active Substance: MORPHINE
  10. SERTRALINE [Concomitant]
     Active Substance: SERTRALINE HYDROCHLORIDE
  11. MAGNESIUM OXIDE. [Concomitant]
     Active Substance: MAGNESIUM OXIDE
  12. SPIRONOLACTONE. [Concomitant]
     Active Substance: SPIRONOLACTONE
  13. AMBRISENTAN [Suspect]
     Active Substance: AMBRISENTAN
     Indication: PULMONARY ARTERIAL HYPERTENSION
     Dosage: 5 MG, QD
     Route: 048
  14. AMBRISENTAN [Suspect]
     Active Substance: AMBRISENTAN
     Indication: PULMONARY HYPERTENSION
  15. ATORVASTATIN [Concomitant]
     Active Substance: ATORVASTATIN
  16. POTASSIUM CHLORIDE. [Concomitant]
     Active Substance: POTASSIUM CHLORIDE
  17. RIFAXIMIN. [Concomitant]
     Active Substance: RIFAXIMIN
  18. CALCIUM CARBONATE. [Concomitant]
     Active Substance: CALCIUM CARBONATE
  19. VITAMIN D3 [Concomitant]
     Active Substance: CHOLECALCIFEROL
  20. LACTULOSE. [Concomitant]
     Active Substance: LACTULOSE
  21. ACETAMINOPHEN. [Concomitant]
     Active Substance: ACETAMINOPHEN
  22. SENNA [SENNOSIDE A+B] [Concomitant]
  23. OXYCODONE [Concomitant]
     Active Substance: OXYCODONE
  24. TORSEMIDE. [Concomitant]
     Active Substance: TORSEMIDE
  25. VENTOLIN HFA [Concomitant]
     Active Substance: ALBUTEROL SULFATE
  26. ZOLEDRONIC ACID [Concomitant]
     Active Substance: ZOLEDRONIC ACID

REACTIONS (9)
  - Hepatic encephalopathy [Unknown]
  - Ill-defined disorder [Unknown]
  - Pain [Unknown]
  - Coeliac disease [Unknown]
  - Depression [Unknown]
  - Osteoporosis [Unknown]
  - Amnesia [Unknown]
  - Hepatic failure [Unknown]
  - Non-alcoholic steatohepatitis [Unknown]
